FAERS Safety Report 6800686-8 (Version None)
Quarter: 2010Q2

REPORT INFORMATION
  Report Type: 
  Country: None (occurrence: None)
  Receive Date: 20100622
  Receipt Date: 20100607
  Transmission Date: 20101027
  Serious: Yes (Life-Threatening, Other)
  Sender: FDA-Public Use
  Company Number: 608459

PATIENT
  Age: 68 Year
  Sex: Male
  Weight: 102.73 kg

DRUGS (1)
  1. PROPOFOL [Suspect]
     Indication: DRUG USE FOR UNKNOWN INDICATION
     Dosage: 130 MG, ONCE, INTRAVENOUS
     Route: 042
     Dates: start: 20100531, end: 20100531

REACTIONS (5)
  - BRADYCARDIA [None]
  - CEREBRAL ISCHAEMIA [None]
  - HYPOTENSION [None]
  - HYPOXIA [None]
  - POST PROCEDURAL COMPLICATION [None]
